FAERS Safety Report 5517996-7 (Version None)
Quarter: 2007Q4

REPORT INFORMATION
  Report Type: 
  Country: None (occurrence: None)
  Receive Date: 20071113
  Receipt Date: 20071030
  Transmission Date: 20080405
  Serious: Yes (Disabling, Other)
  Sender: FDA-Public Use
  Company Number: DSA_30818_2007

PATIENT
  Age: 90 Year
  Sex: Female

DRUGS (3)
  1. CARDIZEM [Suspect]
     Indication: HYPERTENSION
     Dosage: DF ORAL,  DR ORAL
     Route: 048
     Dates: start: 20030401, end: 20040501
  2. CARDIZEM [Suspect]
     Indication: HYPERTENSION
     Dosage: DF ORAL,  DR ORAL
     Route: 048
     Dates: start: 20040501, end: 20050401
  3. ENALAPRIL MALEATE [Suspect]
     Indication: HYPERTENSION
     Dosage: DF
     Dates: end: 20050501

REACTIONS (9)
  - AMNESIA [None]
  - BALANCE DISORDER [None]
  - CONFUSIONAL STATE [None]
  - DRUG EFFECT DECREASED [None]
  - FATIGUE [None]
  - GAIT DISTURBANCE [None]
  - INFLAMMATION [None]
  - MUSCULAR WEAKNESS [None]
  - ORAL PAIN [None]
